FAERS Safety Report 4684685-0 (Version None)
Quarter: 2005Q2

REPORT INFORMATION
  Report Type: 
  Country: None (occurrence: None)
  Receive Date: 20050603
  Receipt Date: 20050526
  Transmission Date: 20051028
  Serious: Yes (Hospitalization)
  Sender: FDA-Public Use
  Company Number: USA-2005-0020340

PATIENT
  Age: 69 Year
  Sex: Male

DRUGS (5)
  1. PERI-COLACE [Suspect]
     Indication: CONSTIPATION
     Dosage: 4 CAP
  2. SENOKOT [Suspect]
     Indication: CONSTIPATION
  3. OXYCONTIN [Concomitant]
  4. OXYCODONE HYDROCHLORIDE, PARACETAMOL [Concomitant]
  5. LACTULOSE [Concomitant]

REACTIONS (1)
  - DRUG INEFFECTIVE [None]
